FAERS Safety Report 17731372 (Version 2)
Quarter: 2020Q2

REPORT INFORMATION
  Report Type: Spontaneous
  Country: AT (occurrence: AT)
  Receive Date: 20200430
  Receipt Date: 20200513
  Transmission Date: 20200714
  Serious: Yes (Hospitalization, Other)
  Sender: FDA-Public Use
  Company Number: AT-BAXTER-2020BAX009040

PATIENT

DRUGS (7)
  1. RITUXIMAB. [Suspect]
     Active Substance: RITUXIMAB
     Indication: ANTISYNTHETASE SYNDROME
     Dosage: ON DAY 8 AND 15 POST HLH DIAGNOSIS
     Route: 065
  2. KINERET [Suspect]
     Active Substance: ANAKINRA
     Indication: HAEMOPHAGOCYTIC LYMPHOHISTIOCYTOSIS
     Route: 058
  3. ENDOXAN ANDQUOT;BAXTERANDQUOT; 200 MG - TROCKENSTECHAMPULLE [Suspect]
     Active Substance: CYCLOPHOSPHAMIDE
     Indication: PRODUCT USED FOR UNKNOWN INDICATION
     Dosage: ON DAY 14 POST HLH DIAGNOSIS
     Route: 065
  4. PREDNISOLONE. [Concomitant]
     Active Substance: PREDNISOLONE
     Indication: HAEMOPHAGOCYTIC LYMPHOHISTIOCYTOSIS
     Dosage: STARTED WITH A DAILY DOSE OF 500 MG FOR 3 DAYS, 250 MG FOR 3 DAYS, 100 MG FOR 3 DAYS, AND THEN CONTI
     Route: 065
  5. KINERET [Suspect]
     Active Substance: ANAKINRA
     Dosage: 100-200 MG THREE TIMES DAILY.
     Route: 058
  6. GANCICLOVIR. [Suspect]
     Active Substance: GANCICLOVIR
     Indication: PRODUCT USED FOR UNKNOWN INDICATION
     Route: 065
  7. IMMUNOGLOBULIN HUMAN NORMAL [Suspect]
     Active Substance: HUMAN IMMUNOGLOBULIN G
     Indication: HAEMOPHAGOCYTIC LYMPHOHISTIOCYTOSIS
     Dosage: 0.5-1 G/KG FOR 3-6 DAYS.
     Route: 042

REACTIONS (5)
  - Vascular device infection [Unknown]
  - Off label use [Unknown]
  - Disease progression [Recovered/Resolved]
  - Restrictive pulmonary disease [Unknown]
  - Clostridium difficile colitis [Unknown]
